FAERS Safety Report 5052158-1 (Version None)
Quarter: 2006Q3

REPORT INFORMATION
  Report Type: 
  Country: None (occurrence: None)
  Receive Date: 20060714
  Receipt Date: 20060714
  Transmission Date: 20061208
  Serious: Yes (Other)
  Sender: FDA-Public Use
  Company Number: None

PATIENT
  Age: 26 Year
  Sex: Female
  Weight: 56.6996 kg

DRUGS (1)
  1. NOROXIN [Suspect]
     Indication: URINARY TRACT INFECTION
     Dosage: 400 MG TWICE DAILY PO
     Route: 048
     Dates: start: 20060619, end: 20060622

REACTIONS (8)
  - ARRHYTHMIA [None]
  - ASTHENIA [None]
  - DEAFNESS [None]
  - HEART RATE INCREASED [None]
  - MUSCLE SPASMS [None]
  - NEUROPATHY PERIPHERAL [None]
  - SENSATION OF PRESSURE [None]
  - VISION BLURRED [None]
